FAERS Safety Report 6435109-4 (Version None)
Quarter: 2009Q4

REPORT INFORMATION
  Report Type: 
  Country: None (occurrence: None)
  Receive Date: 20091110
  Receipt Date: 20091103
  Transmission Date: 20100525
  Serious: Yes (Other)
  Sender: FDA-Public Use
  Company Number: ES-ROCHE-666719

PATIENT
  Age: 68 Year
  Sex: Female

DRUGS (4)
  1. BONIVA [Suspect]
     Indication: OSTEOPOROSIS
     Dosage: FREQUENCY: MONTHLY
     Route: 048
     Dates: start: 20091001
  2. METFORMIN HCL [Concomitant]
  3. CALCIUM [Concomitant]
  4. VITAMINE D [Concomitant]

REACTIONS (5)
  - ARTHRALGIA [None]
  - MOVEMENT DISORDER [None]
  - MUSCLE RIGIDITY [None]
  - NODULE [None]
  - RHEUMATOID ARTHRITIS [None]
